FAERS Safety Report 15125274 (Version 3)
Quarter: 2025Q4

REPORT INFORMATION
  Report Type: Spontaneous
  Country: EU (occurrence: EU)
  Receive Date: 20180710
  Receipt Date: 20251031
  Transmission Date: 20260118
  Serious: Yes (Other)
  Sender: MYLAN
  Company Number: EU-MYLANLABS-2018M1051168

PATIENT
  Age: 27 Year
  Sex: Male

DRUGS (12)
  1. VENLAFAXINE [Interacting]
     Active Substance: VENLAFAXINE HYDROCHLORIDE
     Indication: Product used for unknown indication
     Dosage: UNK
  2. VENLAFAXINE [Interacting]
     Active Substance: VENLAFAXINE HYDROCHLORIDE
     Dosage: UNK
     Route: 065
  3. VENLAFAXINE [Interacting]
     Active Substance: VENLAFAXINE HYDROCHLORIDE
     Dosage: UNK
     Route: 065
  4. VENLAFAXINE [Interacting]
     Active Substance: VENLAFAXINE HYDROCHLORIDE
     Dosage: UNK
  5. QUETIAPINE [Interacting]
     Active Substance: QUETIAPINE
     Indication: Product used for unknown indication
     Dosage: 200 MILLIGRAM, QD
  6. QUETIAPINE [Interacting]
     Active Substance: QUETIAPINE
     Dosage: 200 MILLIGRAM, QD
     Route: 065
  7. QUETIAPINE [Interacting]
     Active Substance: QUETIAPINE
     Dosage: 200 MILLIGRAM, QD
     Route: 065
  8. QUETIAPINE [Interacting]
     Active Substance: QUETIAPINE
     Dosage: 200 MILLIGRAM, QD
  9. VALPROIC ACID [Interacting]
     Active Substance: VALPROIC ACID
     Indication: Product used for unknown indication
     Dosage: 250 MILLIGRAM, QD
  10. VALPROIC ACID [Interacting]
     Active Substance: VALPROIC ACID
     Dosage: 250 MILLIGRAM, QD
     Route: 065
  11. VALPROIC ACID [Interacting]
     Active Substance: VALPROIC ACID
     Dosage: 250 MILLIGRAM, QD
     Route: 065
  12. VALPROIC ACID [Interacting]
     Active Substance: VALPROIC ACID
     Dosage: 250 MILLIGRAM, QD

REACTIONS (4)
  - Rhabdomyolysis [Recovered/Resolved]
  - Blood creatine phosphokinase increased [Recovered/Resolved]
  - Myalgia [Recovered/Resolved]
  - Drug interaction [Unknown]
